FAERS Safety Report 11427595 (Version 1)
Quarter: 2015Q3

REPORT INFORMATION
  Report Type: Spontaneous
  Country: US (occurrence: US)
  Receive Date: 20150827
  Receipt Date: 20150827
  Transmission Date: 20151125
  Serious: No
  Sender: FDA-Public Use
  Company Number: US-SA-2015SA088425

PATIENT

DRUGS (1)
  1. AVAPRO [Suspect]
     Active Substance: IRBESARTAN
     Dosage: AVAPRO 300 MG
     Route: 065

REACTIONS (3)
  - Respiratory disorder [Unknown]
  - Nervousness [Unknown]
  - Asthenia [Unknown]
